FAERS Safety Report 7962305-7 (Version None)
Quarter: 2011Q4

REPORT INFORMATION
  Report Type: 
  Country: None (occurrence: None)
  Receive Date: 20111207
  Receipt Date: 20111201
  Transmission Date: 20120403
  Serious: Yes (Other)
  Sender: FDA-Public Use
  Company Number: PHHY2011CA105831

PATIENT
  Sex: Female

DRUGS (7)
  1. ZOLEDRONOC ACID [Suspect]
     Indication: OSTEOPOROSIS
     Dosage: 5 MG\100 ML
     Route: 042
     Dates: start: 20090330
  2. ZOLEDRONOC ACID [Suspect]
     Dosage: 5 MG \100 ML
     Route: 042
     Dates: start: 20100218
  3. BOTOX [Concomitant]
     Indication: DYSTONIA
  4. CYANOCOBALAMIN [Concomitant]
     Dosage: 1000 UG, UNK
     Route: 030
  5. ZOLEDRONOC ACID [Suspect]
     Dosage: 5 MG\100 ML
     Route: 042
     Dates: start: 20110131
  6. NAPROXEN [Concomitant]
     Dosage: 250 MG, BID
  7. DIAZEPAM [Concomitant]
     Dosage: 10 MG, QD

REACTIONS (3)
  - DYSTONIA [None]
  - PARKINSON'S DISEASE [None]
  - MUSCLE SPASMS [None]
